FAERS Safety Report 18763249 (Version 1)
Quarter: 2021Q1

REPORT INFORMATION
  Report Type: Spontaneous
  Country: NP (occurrence: NP)
  Receive Date: 20210120
  Receipt Date: 20210120
  Transmission Date: 20210419
  Serious: Yes (Hospitalization, Other)
  Sender: FDA-Public Use
  Company Number: NP-PIRAMAL PHARMA LIMITED-2021-PEL-000013

PATIENT

DRUGS (9)
  1. THIOPENTAL SODIUM. [Suspect]
     Active Substance: THIOPENTAL SODIUM
     Indication: INDUCTION OF ANAESTHESIA
     Dosage: 250 MILLIGRAM
     Route: 065
  2. VECURONIUM [Suspect]
     Active Substance: VECURONIUM BROMIDE
     Indication: NEUROMUSCULAR BLOCKADE
     Dosage: 4 MILLIGRAM
     Route: 065
  3. MIDAZOLAM. [Suspect]
     Active Substance: MIDAZOLAM
     Indication: INDUCTION OF ANAESTHESIA
     Dosage: 1 MILLIGRAM
     Route: 065
  4. VECURONIUM [Suspect]
     Active Substance: VECURONIUM BROMIDE
     Dosage: INTERMITTENT BOLUSES
     Route: 065
  5. ISOFLURANE. [Suspect]
     Active Substance: ISOFLURANE
     Indication: MAINTENANCE OF ANAESTHESIA
     Dosage: 0.6?1 %
  6. NEOSTIGMINE. [Suspect]
     Active Substance: NEOSTIGMINE METHYLSULFATE
     Indication: NEUROMUSCULAR BLOCKADE REVERSAL
     Dosage: 2.5 MILLIGRAM
     Route: 065
  7. SUCCINYLCHOLINE                    /00057701/ [Suspect]
     Active Substance: SUCCINYLCHOLINE
     Indication: NEUROMUSCULAR BLOCKADE
     Dosage: 75 MILLIGRAM
     Route: 065
  8. FENTANYL. [Suspect]
     Active Substance: FENTANYL
     Indication: INDUCTION OF ANAESTHESIA
     Dosage: 100 MICROGRAM
     Route: 065
  9. ATROPINE. [Suspect]
     Active Substance: ATROPINE
     Indication: NEUROMUSCULAR BLOCKADE REVERSAL
     Dosage: 1.2 MILLIGRAM
     Route: 065

REACTIONS (1)
  - Negative pressure pulmonary oedema [Recovered/Resolved]
